FAERS Safety Report 11573322 (Version 3)
Quarter: 2015Q4

REPORT INFORMATION
  Report Type: Spontaneous
  Country: US (occurrence: US)
  Receive Date: 20150916
  Receipt Date: 20151110
  Transmission Date: 20160304
  Serious: No
  Sender: FDA-Public Use
  Company Number: US-ELI_LILLY_AND_COMPANY-US200910007589

PATIENT
  Age: 45 Year
  Sex: Male

DRUGS (4)
  1. XANAX [Concomitant]
     Active Substance: ALPRAZOLAM
  2. FORTEO [Suspect]
     Active Substance: TERIPARATIDE
     Dosage: 20 UG, QD
     Dates: start: 2010
  3. FORTEO [Suspect]
     Active Substance: TERIPARATIDE
     Indication: OSTEOPOROSIS
     Dosage: 20 UG, QD
     Dates: start: 20090707, end: 20090721
  4. MORPHINE [Concomitant]
     Active Substance: MORPHINE

REACTIONS (19)
  - Injection site rash [Unknown]
  - Bone pain [Unknown]
  - Asthenia [Not Recovered/Not Resolved]
  - Renal disorder [Unknown]
  - Dyspareunia [Not Recovered/Not Resolved]
  - Chills [Unknown]
  - Abdominal pain upper [Not Recovered/Not Resolved]
  - Feeling cold [Unknown]
  - Malaise [Unknown]
  - General physical health deterioration [Unknown]
  - Pain in extremity [Unknown]
  - Mobility decreased [Unknown]
  - Fatigue [Unknown]
  - Feeling cold [Recovering/Resolving]
  - Injection site erythema [Unknown]
  - Dysuria [Not Recovered/Not Resolved]
  - Discomfort [Unknown]
  - Muscular weakness [Unknown]
  - Feeling drunk [Unknown]

NARRATIVE: CASE EVENT DATE: 200907
